FAERS Safety Report 5053860-8 (Version None)
Quarter: 2006Q3

REPORT INFORMATION
  Report Type: 
  Country: None (occurrence: None)
  Receive Date: 20060712
  Receipt Date: 20060629
  Transmission Date: 20061208
  Serious: Yes (Death, Life-Threatening, Hospitalization)
  Sender: FDA-Public Use
  Company Number: 2006068395

PATIENT
  Age: 83 Year
  Sex: Male

DRUGS (10)
  1. ESTRAMUSTINE PHOSPHATE SODIUM [Suspect]
     Indication: PROSTATE CANCER
     Dosage: 280 MG, ORAL
     Route: 048
     Dates: start: 20051125, end: 20060512
  2. BENEXATE HYDROCHLORIDE                    (BENEXATE HYDROCHLORIDE) [Suspect]
     Indication: GASTRIC ULCER
     Dosage: ORAL
     Route: 048
     Dates: end: 20060512
  3. PAROXETINE HCL [Suspect]
     Indication: DEPRESSION
     Dosage: 20 MG, ORAL
     Route: 048
     Dates: end: 20060512
  4. TRIMEBUTINE MALEATE            (TRIMEBUTINE MALEATE) [Suspect]
     Indication: GASTRITIS
     Dosage: 300 MG, ORAL
     Route: 048
     Dates: end: 20060512
  5. ASPIRIN [Suspect]
     Indication: ANGINA PECTORIS
     Dosage: 100 MG, ORAL
     Route: 048
     Dates: end: 20060512
  6. DILTIAZEM HYDROCHLORIDE [Concomitant]
  7. ISOSORIDE DINITRATE (ISOSORIDE DINITRATE) [Concomitant]
  8. NICORANDIL (NICORANDIL) [Concomitant]
  9. NITROGLYCERIN [Concomitant]
  10. FUROSEMIDE [Concomitant]

REACTIONS (4)
  - HAEMOPTYSIS [None]
  - PNEUMONIA [None]
  - PULMONARY ALVEOLAR HAEMORRHAGE [None]
  - RESPIRATORY FAILURE [None]
